FAERS Safety Report 5707384-2 (Version None)
Quarter: 2008Q2

REPORT INFORMATION
  Report Type: 
  Country: None (occurrence: None)
  Receive Date: 20080416
  Receipt Date: 20080321
  Transmission Date: 20081010
  Serious: No
  Sender: FDA-Public Use
  Company Number: US-BOEHRINGER INGELHEIM GMBH, GERMANY-2008-BP-04457BP

PATIENT
  Sex: Male

DRUGS (4)
  1. FLOMAX [Suspect]
     Indication: BENIGN PROSTATIC HYPERPLASIA
     Route: 048
     Dates: start: 20070501
  2. GLUCOPHAGE [Concomitant]
     Indication: DIABETES MELLITUS
  3. COUMADIN [Concomitant]
     Indication: ATRIAL FIBRILLATION
  4. DIGITEK [Concomitant]
     Indication: CARDIAC DISORDER

REACTIONS (1)
  - DYSURIA [None]
